FAERS Safety Report 7827497-9 (Version None)
Quarter: 2011Q4

REPORT INFORMATION
  Report Type: 
  Country: None (occurrence: None)
  Receive Date: 20111020
  Receipt Date: 20111012
  Transmission Date: 20120403
  Serious: Yes (Death)
  Sender: FDA-Public Use
  Company Number: GB-ROCHE-754668

PATIENT
  Sex: Female
  Weight: 90 kg

DRUGS (9)
  1. FLUOROURACIL [Concomitant]
     Dosage: AS PART OF FEC THERAPY - RECEIVED 3 CYCLES
     Dates: start: 20100601, end: 20100715
  2. TAXOTERE [Concomitant]
     Dosage: RECEIVED 3 CYCLES
     Dates: start: 20100806, end: 20100915
  3. HERCEPTIN [Suspect]
     Indication: BREAST CANCER
     Route: 042
     Dates: start: 20100827, end: 20101210
  4. PERINDOPRIL ERBUMINE [Concomitant]
     Indication: CARDIOVASCULAR EVENT PROPHYLAXIS
     Route: 048
  5. DOCETAXEL [Concomitant]
     Dosage: RECEIVED 3 CYCLES
  6. RAMIPRIL [Suspect]
     Indication: EJECTION FRACTION DECREASED
     Route: 065
  7. CYCLOPHOSPHAMIDE [Concomitant]
     Dosage: AS PART OF FEC THERAPY - RECEIVED 3 CYCLES
     Dates: start: 20100701, end: 20100715
  8. EPIRUBICIN [Concomitant]
     Dosage: AS PART OF FEC THERAPY - RECEIVED 3 CYCLES
     Dates: start: 20100601, end: 20100916
  9. HERCEPTIN [Suspect]
     Dosage: LOADING DOSE
     Route: 042

REACTIONS (3)
  - SUDDEN CARDIAC DEATH [None]
  - EJECTION FRACTION DECREASED [None]
  - CARDIAC FAILURE ACUTE [None]
